FAERS Safety Report 8794476 (Version 1)
Quarter: 2012Q4

REPORT INFORMATION
  Report Type: 
  Country: US (occurrence: US)
  Receive Date: 20120917
  Receipt Date: 20120917
  Transmission Date: 20130627
  Serious: No
  Sender: FDA-Public Use
  Company Number: PHEH2012US010688

PATIENT
  Sex: Male

DRUGS (3)
  1. TASIGNA [Suspect]
     Dosage: 400 mg, BID
     Route: 048
     Dates: start: 20120503
  2. TASIGNA [Suspect]
     Dosage: 200 mg, BID
     Route: 048
  3. OMEPRAZOLE [Concomitant]

REACTIONS (1)
  - Abdominal pain upper [Recovered/Resolved]
